FAERS Safety Report 6674553-7 (Version None)
Quarter: 2010Q2

REPORT INFORMATION
  Report Type: 
  Country: None (occurrence: None)
  Receive Date: 20100409
  Receipt Date: 20100401
  Transmission Date: 20101027
  Serious: Yes (Hospitalization)
  Sender: FDA-Public Use
  Company Number: CH-ASTRAZENECA-2010SE15155

PATIENT
  Age: 43 Year
  Sex: Male

DRUGS (12)
  1. SEROQUEL XR [Suspect]
     Indication: BIPOLAR DISORDER
     Route: 048
     Dates: start: 20091120, end: 20091123
  2. SEROQUEL XR [Suspect]
     Route: 048
     Dates: start: 20091124, end: 20100126
  3. SEROQUEL XR [Suspect]
     Route: 048
     Dates: start: 20100127, end: 20100128
  4. VALPROATE SODIUM [Suspect]
     Route: 048
     Dates: start: 20100129, end: 20100130
  5. VALPROATE SODIUM [Suspect]
     Route: 048
     Dates: start: 20100131, end: 20100204
  6. CIPRALEX [Concomitant]
     Route: 048
     Dates: start: 20091229, end: 20100107
  7. CIPRALEX [Concomitant]
     Route: 048
     Dates: start: 20100108, end: 20100128
  8. CIPRALEX [Concomitant]
     Route: 048
     Dates: start: 20100129, end: 20100131
  9. LITHIOFOR [Concomitant]
     Dosage: 330-660 MG DAILY
     Route: 048
     Dates: start: 20091218, end: 20091223
  10. LITHIOFOR [Concomitant]
     Route: 048
     Dates: start: 20091224, end: 20100303
  11. LITHIOFOR [Concomitant]
     Route: 048
     Dates: start: 20100304
  12. BEROCCA C [Concomitant]
     Dates: start: 20100127

REACTIONS (1)
  - PANCYTOPENIA [None]
